FAERS Safety Report 9116108 (Version 1)
Quarter: 2013Q1

REPORT INFORMATION
  Report Type: Spontaneous
  Country: IT (occurrence: IT)
  Receive Date: 20130225
  Receipt Date: 20130225
  Transmission Date: 20140127
  Serious: Yes (Other)
  Sender: FDA-Public Use
  Company Number: IT-BAYER-2013-023406

PATIENT
  Age: 77 Year
  Sex: Male
  Weight: 69.84 kg

DRUGS (5)
  1. CARDIOASPIRIN [Suspect]
     Indication: ANGIOPLASTY
     Dosage: 100 MG, QD
     Route: 048
     Dates: start: 20121001, end: 20130130
  2. CARDIOASPIRIN [Suspect]
     Indication: ANGIOPLASTY
     Dosage: 100 MG, QD
     Route: 048
  3. TICAGRELOR [Suspect]
     Indication: ANGIOPLASTY
     Dosage: DAILY DOSE 90 MG
     Route: 048
     Dates: start: 20121001, end: 20130130
  4. SINTROM [Concomitant]
     Indication: HYPERTENSIVE HEART DISEASE
     Dosage: DAILY DOSE 1 MG
     Route: 048
     Dates: start: 20121001
  5. ENAPREN [Concomitant]
     Indication: HYPERTENSIVE HEART DISEASE
     Dosage: DAILY DOSE 20 MG
     Route: 048
     Dates: start: 20121001

REACTIONS (3)
  - Hypotension [Recovered/Resolved]
  - Pruritus generalised [Recovered/Resolved]
  - Generalised erythema [Recovered/Resolved]
